FAERS Safety Report 4825308-7 (Version None)
Quarter: 2005Q4

REPORT INFORMATION
  Report Type: 
  Country: None (occurrence: None)
  Receive Date: 20051110
  Receipt Date: 20051110
  Transmission Date: 20060501
  Serious: Yes (Life-Threatening, Hospitalization)
  Sender: FDA-Public Use
  Company Number: None

PATIENT
  Age: 79 Year
  Sex: Female
  Weight: 68.0396 kg

DRUGS (4)
  1. FENTANYL [Suspect]
     Indication: NEURALGIA
     Dosage: EVERY 48 HRS TRANSDERMAL
     Dates: start: 20050929
  2. NEURONTIN [Concomitant]
  3. ASPIRIN [Concomitant]
  4. ATENOLOL [Concomitant]

REACTIONS (6)
  - DIFFICULTY IN WALKING [None]
  - DYSSTASIA [None]
  - EYE MOVEMENT DISORDER [None]
  - FEELING COLD [None]
  - PAIN [None]
  - UNRESPONSIVE TO VERBAL STIMULI [None]
